FAERS Safety Report 6059896-2 (Version None)
Quarter: 2009Q1

REPORT INFORMATION
  Report Type: 
  Country: None (occurrence: None)
  Receive Date: 20090130
  Receipt Date: 20081211
  Transmission Date: 20090719
  Serious: No
  Sender: FDA-Public Use
  Company Number: US-ABBOTT-08P-163-0492379-00

PATIENT
  Sex: Male
  Weight: 106.69 kg

DRUGS (3)
  1. LUPRON DEPOT [Suspect]
     Indication: PROSTATE CANCER
     Dates: start: 20061201
  2. KETOCONAZOLE [Concomitant]
     Indication: DRUG USE FOR UNKNOWN INDICATION
  3. PREDNISONE [Concomitant]
     Indication: DRUG USE FOR UNKNOWN INDICATION

REACTIONS (5)
  - HOT FLUSH [None]
  - LACRIMATION INCREASED [None]
  - LOSS OF LIBIDO [None]
  - MUSCLE SPASMS [None]
  - OEDEMA PERIPHERAL [None]
